FAERS Safety Report 7030124-4 (Version None)
Quarter: 2010Q4

REPORT INFORMATION
  Report Type: 
  Country: None (occurrence: None)
  Receive Date: 20101006
  Receipt Date: 20100930
  Transmission Date: 20110411
  Serious: Yes (Hospitalization, Disabling, Other)
  Sender: FDA-Public Use
  Company Number: GB-PFIZER INC-2010020628

PATIENT
  Age: 50 Year
  Sex: Male

DRUGS (1)
  1. SUTENT [Suspect]
     Indication: METASTATIC RENAL CELL CARCINOMA
     Dosage: 50 MG, 1X/DAY
     Route: 048
     Dates: start: 20100104, end: 20100118

REACTIONS (7)
  - ARTHRITIS [None]
  - C-REACTIVE PROTEIN INCREASED [None]
  - CHILLS [None]
  - GOUT [None]
  - HEADACHE [None]
  - PYREXIA [None]
  - VOMITING [None]
